FAERS Safety Report 6897797-8 (Version None)
Quarter: 2010Q3

REPORT INFORMATION
  Report Type: 
  Country: None (occurrence: None)
  Receive Date: 20100802
  Receipt Date: 20070727
  Transmission Date: 20110219
  Serious: Yes (Other)
  Sender: FDA-Public Use
  Company Number: US-PFIZER INC-2007063683

PATIENT
  Sex: Female

DRUGS (5)
  1. LYRICA [Suspect]
     Indication: NEUROPATHY PERIPHERAL
     Dates: start: 20070726, end: 20070727
  2. GLUCAGEN [Suspect]
     Indication: TYPE 2 DIABETES MELLITUS
  3. THYROID TAB [Concomitant]
  4. AMARYL [Concomitant]
  5. OXYCODONE HCL AND ACETAMINOPHEN [Concomitant]
     Indication: PAIN

REACTIONS (3)
  - DIZZINESS [None]
  - SOMNOLENCE [None]
  - VERTIGO [None]
